FAERS Safety Report 4521368-1 (Version None)
Quarter: 2004Q4

REPORT INFORMATION
  Report Type: 
  Country: None (occurrence: None)
  Receive Date: 20041029
  Receipt Date: 20040816
  Transmission Date: 20050328
  Serious: No
  Sender: FDA-Public Use
  Company Number: 2004-119451-NL

PATIENT
  Age: 26 Year
  Sex: Female
  Weight: 55.9 kg

DRUGS (3)
  1. NUVARING [Suspect]
     Indication: CONTRACEPTION
     Dosage: 1 DF DAILY VAGINAL
     Route: 067
     Dates: start: 20000101, end: 20040804
  2. ALTACE [Concomitant]
  3. ATENOLOL [Concomitant]

REACTIONS (3)
  - MENORRHAGIA [None]
  - VAGINAL CONTRACEPTIVE DEVICE EXPELLED [None]
  - WITHDRAWAL BLEED [None]
